FAERS Safety Report 9572769 (Version 2)
Quarter: 2013Q4

REPORT INFORMATION
  Report Type: Spontaneous
  Country: US (occurrence: US)
  Receive Date: 20131001
  Receipt Date: 20131001
  Transmission Date: 20140711
  Serious: No
  Sender: FDA-Public Use
  Company Number: US-PURDUE-USA-2012-0081490

PATIENT
  Age: 70 Year
  Sex: Female
  Weight: 68.03 kg

DRUGS (1)
  1. BUTRANS [Suspect]
     Indication: PAIN
     Dosage: 5 MCG, Q1H
     Route: 062
     Dates: start: 20120123

REACTIONS (2)
  - Fear [Unknown]
  - Dyspnoea [Recovered/Resolved]
